FAERS Safety Report 17945744 (Version 2)
Quarter: 2020Q3

REPORT INFORMATION
  Report Type: Spontaneous
  Country: US (occurrence: US)
  Receive Date: 20200626
  Receipt Date: 20200716
  Transmission Date: 20201103
  Serious: Yes (Other)
  Sender: FDA-Public Use
  Company Number: US-ROCHE-2631294

PATIENT
  Age: 93 Year
  Sex: Female

DRUGS (3)
  1. XELODA [Suspect]
     Active Substance: CAPECITABINE
     Indication: RECTAL NEOPLASM
     Dosage: AT THE NIGHT FOR 14 DAYS THEN 7 DAYS OFF ONGOING
     Route: 048
     Dates: start: 201707
  2. XELODA [Suspect]
     Active Substance: CAPECITABINE
     Indication: RECTAL CANCER
     Dosage: EVERY 14 DAYS ONGOING : YES
     Route: 048
     Dates: start: 201708
  3. XELODA [Suspect]
     Active Substance: CAPECITABINE
     Indication: COLON NEOPLASM
     Dosage: IN THE MORNING FOR 14 DAYS THEN 7 DAYS
     Route: 048
     Dates: start: 201707

REACTIONS (3)
  - Skin abrasion [Unknown]
  - Head injury [Unknown]
  - Drug ineffective [Unknown]

NARRATIVE: CASE EVENT DATE: 202004
